FAERS Safety Report 20897060 (Version 1)
Quarter: 2022Q2

REPORT INFORMATION
  Report Type: Report from Study
  Country: US (occurrence: US)
  Receive Date: 20220531
  Receipt Date: 20220531
  Transmission Date: 20220721
  Serious: Yes (Other)
  Sender: FDA-Public Use
  Company Number: US-BAYER-2022A073493

PATIENT
  Age: 79 Year
  Sex: Male

DRUGS (1)
  1. NUBEQA [Suspect]
     Active Substance: DAROLUTAMIDE
     Dosage: 600 MG, BID
     Route: 048

REACTIONS (5)
  - Renal disorder [None]
  - Weight decreased [None]
  - Frequent bowel movements [None]
  - Blood triglycerides increased [None]
  - Product dose omission issue [None]
